FAERS Safety Report 5136362-X (Version None)
Quarter: 2006Q4

REPORT INFORMATION
  Report Type: 
  Country: None (occurrence: None)
  Receive Date: 20061027
  Receipt Date: 20061018
  Transmission Date: 20070319
  Serious: Yes (Hospitalization)
  Sender: FDA-Public Use
  Company Number: DE-GILEAD-2006-0010495

PATIENT
  Sex: Female

DRUGS (2)
  1. VISTIDE [Suspect]
     Indication: VIRAL INFECTION
     Dosage: SINGLE DOSE
     Route: 042
     Dates: start: 20060614, end: 20060614
  2. PROBENECID [Concomitant]

REACTIONS (3)
  - ACCIDENTAL OVERDOSE [None]
  - PANCYTOPENIA [None]
  - RENAL IMPAIRMENT [None]
